FAERS Safety Report 7557502-9 (Version None)
Quarter: 2011Q2

REPORT INFORMATION
  Report Type: 
  Country: None (occurrence: None)
  Receive Date: 20110620
  Receipt Date: 20110609
  Transmission Date: 20111010
  Serious: Yes (Other)
  Sender: FDA-Public Use
  Company Number: US-JNJFOC-20110306631

PATIENT
  Sex: Female
  Weight: 57.15 kg

DRUGS (3)
  1. BACTRIM [Suspect]
     Indication: PRODUCT USED FOR UNKNOWN INDICATION
     Route: 065
  2. TETANUS TOXOID [Concomitant]
     Indication: LOCALISED INFECTION
     Dosage: ONCE IN LEFT ARM
     Route: 030
     Dates: start: 20110101
  3. LEVAQUIN [Suspect]
     Indication: LOCALISED INFECTION
     Route: 048
     Dates: start: 20110101, end: 20110101

REACTIONS (7)
  - INSOMNIA [None]
  - PAIN [None]
  - URINARY TRACT INFECTION [None]
  - PALPITATIONS [None]
  - MOOD ALTERED [None]
  - CHRONIC OBSTRUCTIVE PULMONARY DISEASE [None]
  - CONTUSION [None]
